FAERS Safety Report 9413982 (Version 1)
Quarter: 2013Q3

REPORT INFORMATION
  Report Type: Spontaneous
  Country: US (occurrence: US)
  Receive Date: 20130723
  Receipt Date: 20130723
  Transmission Date: 20140515
  Serious: Yes (Hospitalization)
  Sender: FDA-Public Use
  Company Number: US-PFIZER INC-2013214216

PATIENT
  Age: 65 Year
  Sex: Female
  Weight: 95.24 kg

DRUGS (5)
  1. TIKOSYN [Suspect]
     Indication: ATRIAL FIBRILLATION
     Dosage: 250 UG, TWO TIMES A DAY
     Dates: start: 201112
  2. NITROSTAT [Suspect]
     Indication: CARDIAC DISORDER
     Dosage: 0.4 MG, AS NEEDED
  3. NITROSTAT [Suspect]
     Indication: CHEST PAIN
  4. LASIX [Suspect]
     Indication: BURSITIS
     Dosage: UNK
  5. LORTAB [Concomitant]
     Indication: ARTHRITIS
     Dosage: UNK, AS NEEDED

REACTIONS (2)
  - Cardiac failure congestive [Unknown]
  - Fluid retention [Unknown]
